FAERS Safety Report 18091207 (Version 1)
Quarter: 2020Q3

REPORT INFORMATION
  Report Type: Spontaneous
  Country: US (occurrence: US)
  Receive Date: 20200729
  Receipt Date: 20200729
  Transmission Date: 20201103
  Serious: Yes (Life-Threatening, Hospitalization)
  Sender: FDA-Public Use
  Company Number: None

PATIENT
  Age: 63 Year
  Sex: Male
  Weight: 102 kg

DRUGS (1)
  1. LUMASON [Suspect]
     Active Substance: SULFUR HEXAFLUORIDE
     Indication: X-RAY WITH CONTRAST
     Dosage: ?          OTHER FREQUENCY:ONCE;?
     Route: 040
     Dates: start: 20200722, end: 20200722

REACTIONS (4)
  - Encephalopathy [None]
  - Cardiac arrest [None]
  - Tremor [None]
  - Anaphylactic reaction [None]

NARRATIVE: CASE EVENT DATE: 20200722
